FAERS Safety Report 8584438-7 (Version None)
Quarter: 2012Q3

REPORT INFORMATION
  Report Type: 
  Country: None (occurrence: None)
  Receive Date: 20120730
  Receipt Date: 20120713
  Transmission Date: 20120928
  Serious: Yes (Other)
  Sender: FDA-Public Use
  Company Number: DSA_58439_2012

PATIENT
  Sex: Female

DRUGS (5)
  1. CLONAZEPAM [Concomitant]
  2. XENAZINE [Suspect]
     Indication: HUNTINGTON'S DISEASE
     Dosage: 12.5 MG EVERY MORNING, ORAL
     Route: 048
     Dates: start: 20120227, end: 20120618
  3. NEURONTIN [Concomitant]
  4. KEPPRA [Concomitant]
  5. TOPAMAX [Concomitant]

REACTIONS (1)
  - TREMOR [None]
